FAERS Safety Report 24849250 (Version 1)
Quarter: 2025Q1

REPORT INFORMATION
  Report Type: Spontaneous
  Country: US (occurrence: None)
  Receive Date: 20250115
  Receipt Date: 20250115
  Transmission Date: 20250409
  Serious: Yes (Other)
  Sender: FDA-CTU
  Company Number: None

PATIENT
  Sex: Female

DRUGS (9)
  1. ORENCIA [Suspect]
     Active Substance: ABATACEPT
     Indication: Rheumatoid arthritis
     Dosage: UNDER THE SKIN
     Route: 058
     Dates: start: 20240709
  2. ALPRAZOLAM [Concomitant]
     Active Substance: ALPRAZOLAM
  3. CANDESARTAN [Concomitant]
     Active Substance: CANDESARTAN
  4. ELIQUIS [Concomitant]
     Active Substance: APIXABAN
  5. LEUCOVORIN [Concomitant]
     Active Substance: LEUCOVORIN\LEUCOVORIN CALCIUM
  6. METHOTREXATE [Concomitant]
     Active Substance: METHOTREXATE
  7. METOPROL SUC TAB [Concomitant]
  8. OMEPRAZOLE [Concomitant]
     Active Substance: OMEPRAZOLE
  9. TRAZODONE [Concomitant]
     Active Substance: TRAZODONE HYDROCHLORIDE

REACTIONS (1)
  - Surgery [None]
